FAERS Safety Report 24348970 (Version 1)
Quarter: 2024Q3

REPORT INFORMATION
  Report Type: Spontaneous
  Country: US (occurrence: US)
  Receive Date: 20240923
  Receipt Date: 20240923
  Transmission Date: 20241017
  Serious: No
  Sender: AUROBINDO
  Company Number: US-AUROBINDO-AUR-APL-2024-032000

PATIENT
  Sex: Female

DRUGS (1)
  1. MONTELUKAST [Suspect]
     Active Substance: MONTELUKAST SODIUM
     Indication: Product used for unknown indication
     Dosage: UNK
     Route: 065

REACTIONS (12)
  - Disturbance in attention [Unknown]
  - Dizziness [Unknown]
  - Feeling abnormal [Unknown]
  - Faeces soft [Unknown]
  - Hypersensitivity [Unknown]
  - Heart rate increased [Unknown]
  - Lymphadenopathy [Unknown]
  - Nausea [Unknown]
  - Sinus congestion [Unknown]
  - Tremor [Unknown]
  - Therapeutic response changed [Unknown]
  - Product substitution issue [Unknown]
